FAERS Safety Report 9450896 (Version 4)
Quarter: 2014Q1

REPORT INFORMATION
  Report Type: Report from Study
  Country: DE (occurrence: DE)
  Receive Date: 20130809
  Receipt Date: 20140110
  Transmission Date: 20141002
  Serious: Yes (Hospitalization, Other)
  Sender: FDA-Public Use
  Company Number: DE-BRISTOL-MYERS SQUIBB COMPANY-19180587

PATIENT
  Age: 82 Year
  Sex: Female

DRUGS (4)
  1. ABATACEPT [Suspect]
     Indication: RHEUMATOID ARTHRITIS
     Dosage: DOSE:125MG,ONCE WEEKLY?TILL JUN-2013
     Dates: start: 200807, end: 201306
  2. METHOTREXATE [Suspect]
     Indication: RHEUMATOID ARTHRITIS
     Dosage: 1DF:10 UNITS NOS OR 7.5 UNITS NOS?PARENTERAL ROUTE?7.5 MG?TILL JUN-2013
     Dates: start: 2004, end: 201306
  3. TOCILIZUMAB [Suspect]
  4. PREDNISONE [Suspect]

REACTIONS (7)
  - Urinary tract infection [Recovered/Resolved]
  - Diabetes mellitus [Recovered/Resolved]
  - Rheumatoid arthritis [Recovered/Resolved]
  - Cerebrovascular accident [Recovered/Resolved]
  - Spinal fracture [Not Recovered/Not Resolved]
  - Gastric ulcer haemorrhage [Recovered/Resolved]
  - Gastric ulcer [Unknown]
